FAERS Safety Report 20517760 (Version 1)
Quarter: 2022Q1

REPORT INFORMATION
  Report Type: Spontaneous
  Country: CN (occurrence: CN)
  Receive Date: 20220225
  Receipt Date: 20220225
  Transmission Date: 20220423
  Serious: Yes (Other)
  Sender: FDA-Public Use
  Company Number: CN-BAYER-2022A028868

PATIENT
  Age: 84 Year
  Sex: Female
  Weight: 55 kg

DRUGS (1)
  1. AVELOX [Suspect]
     Active Substance: MOXIFLOXACIN HYDROCHLORIDE
     Indication: Pneumonia
     Dosage: 0.4 G, QD
     Route: 041
     Dates: start: 20220212, end: 20220216

REACTIONS (4)
  - Neurological symptom [Recovered/Resolved]
  - Dysphoria [Recovered/Resolved]
  - Hallucination [Recovered/Resolved]
  - Disorientation [Recovered/Resolved]

NARRATIVE: CASE EVENT DATE: 20220216
